FAERS Safety Report 4909250-9 (Version None)
Quarter: 2006Q1

REPORT INFORMATION
  Report Type: 
  Country: None (occurrence: None)
  Receive Date: 20060213
  Receipt Date: 20050824
  Transmission Date: 20060701
  Serious: Yes (Death, Life-Threatening, Hospitalization)
  Sender: FDA-Public Use
  Company Number: 2005PK01553

PATIENT
  Age: 707 Month
  Sex: Male

DRUGS (4)
  1. CASODEX [Suspect]
     Indication: PROSTATE CANCER
     Route: 048
     Dates: start: 20021205, end: 20050823
  2. ZOLADEX [Suspect]
     Indication: PROSTATE CANCER
     Route: 058
     Dates: start: 20021205
  3. ALLOPURINOL [Concomitant]
     Indication: HYPERURICAEMIA
     Route: 048
  4. ATACAND HCT [Concomitant]
     Indication: HYPERTENSION
     Dosage: 8/12.5 MG
     Route: 048

REACTIONS (5)
  - CARDIAC FAILURE [None]
  - CIRCULATORY COLLAPSE [None]
  - INTERSTITIAL LUNG DISEASE [None]
  - LOBAR PNEUMONIA [None]
  - RESPIRATORY ARREST [None]
